FAERS Safety Report 10034448 (Version 1)
Quarter: 2014Q1

REPORT INFORMATION
  Report Type: Spontaneous
  Country: US (occurrence: None)
  Receive Date: 20140321
  Receipt Date: 20140321
  Transmission Date: 20141002
  Serious: Yes (Other)
  Sender: FDA-Public Use
  Company Number: UTC-045860

PATIENT
  Age: 69 Year
  Sex: Female

DRUGS (3)
  1. REMODULIN [Suspect]
     Indication: PULMONARY ARTERIAL HYPERTENSION
     Dosage: 43.2UG/KG (0.03UG/KG 1 IN 1 MIN) INTRAVENOUS DRIP
     Route: 041
     Dates: start: 20120618
  2. ADCIRCA (TADALAFIL) [Concomitant]
  3. WARFARIN (WARFARIN) [Concomitant]

REACTIONS (3)
  - Dyspnoea [None]
  - Chest pain [None]
  - Pneumonia [None]
